FAERS Safety Report 6614128-9 (Version None)
Quarter: 2010Q1

REPORT INFORMATION
  Report Type: 
  Country: None (occurrence: None)
  Receive Date: 20100303
  Receipt Date: 20100303
  Transmission Date: 20100710
  Serious: Yes (Life-Threatening, Other)
  Sender: FDA-Public Use
  Company Number: None

PATIENT
  Age: 75 Year
  Sex: Male
  Weight: 53.0709 kg

DRUGS (1)
  1. LEVAQUIN [Suspect]
     Indication: CYSTITIS
     Dosage: HOSPITAL - 2-4DAYS INTERVENOUS 250 MG 1 DAY MOUTH 2-4 DAYS - HOSPITAL 3 DAYS - HOME - PILL
     Route: 042
     Dates: start: 20090902, end: 20090906

REACTIONS (20)
  - ABASIA [None]
  - ABDOMINAL PAIN [None]
  - ACTIVITIES OF DAILY LIVING IMPAIRED [None]
  - APHAGIA [None]
  - APHASIA [None]
  - ASTHENIA [None]
  - COGNITIVE DISORDER [None]
  - CONFUSIONAL STATE [None]
  - COORDINATION ABNORMAL [None]
  - DIARRHOEA [None]
  - HYPERHIDROSIS [None]
  - IMPAIRED WORK ABILITY [None]
  - INCOHERENT [None]
  - INSOMNIA [None]
  - MEMORY IMPAIRMENT [None]
  - NAUSEA [None]
  - NERVOUS SYSTEM DISORDER [None]
  - RASH GENERALISED [None]
  - RASH MACULAR [None]
  - WEIGHT DECREASED [None]
